FAERS Safety Report 23320594 (Version 1)
Quarter: 2023Q4

REPORT INFORMATION
  Report Type: Spontaneous
  Country: US (occurrence: US)
  Receive Date: 20231220
  Receipt Date: 20231220
  Transmission Date: 20240109
  Serious: Yes (Life-Threatening, Hospitalization, Other)
  Sender: FDA-Public Use
  Company Number: US-PFIZER INC-202300447765

PATIENT
  Age: 67 Year
  Sex: Male

DRUGS (4)
  1. DAPTOMYCIN [Suspect]
     Active Substance: DAPTOMYCIN
     Indication: Enterococcal infection
     Dosage: 12 MG/KG, DAILY
  2. MEROPENEM [Concomitant]
     Active Substance: MEROPENEM
     Indication: Enterococcal infection
     Dosage: UNK
  3. MICAFUNGIN [Concomitant]
     Active Substance: MICAFUNGIN SODIUM
     Indication: Enterococcal infection
     Dosage: UNK
  4. LINEZOLID [Concomitant]
     Active Substance: LINEZOLID
     Indication: Enterococcal infection
     Dosage: UNK

REACTIONS (2)
  - Treatment failure [Unknown]
  - Meningitis enterococcal [Unknown]
